FAERS Safety Report 9173980 (Version 1)
Quarter: 2013Q1

REPORT INFORMATION
  Report Type: Spontaneous
  Country: US (occurrence: US)
  Receive Date: 20130320
  Receipt Date: 20130320
  Transmission Date: 20140127
  Serious: Yes (Other)
  Sender: FDA-Public Use
  Company Number: US-BAYER-2013-031960

PATIENT
  Age: 83 Year
  Sex: Female
  Weight: 68.93 kg

DRUGS (10)
  1. BAYER GENUINE ASPIRIN ORIGINAL STRENGTH [Suspect]
     Indication: ISCHAEMIC HEART DISEASE PROPHYLAXIS
     Dosage: 1 DF, QD
     Route: 048
     Dates: start: 2009
  2. METFORMIN [Concomitant]
  3. NIACIN [Concomitant]
  4. DILTIAZEM [Concomitant]
  5. LANOXIN [Concomitant]
  6. METOPROLOL [Concomitant]
  7. PRAVASTATIN [Concomitant]
  8. LOSARTAN [Concomitant]
  9. DIGOXINE [Concomitant]
  10. PRIMIDONE [Concomitant]

REACTIONS (2)
  - Anaemia [Recovered/Resolved]
  - Anaemia [Not Recovered/Not Resolved]
